FAERS Safety Report 9536632 (Version 1)
Quarter: 2013Q3

REPORT INFORMATION
  Report Type: Spontaneous
  Country: US (occurrence: None)
  Receive Date: 20130918
  Receipt Date: 20130918
  Transmission Date: 20140515
  Serious: Yes (Other)
  Sender: FDA-Public Use
  Company Number: None

PATIENT
  Sex: 0

DRUGS (1)
  1. APLISOL [Suspect]
     Indication: MYCOBACTERIUM TUBERCULOSIS COMPLEX TEST
     Route: 023
     Dates: start: 20130821

REACTIONS (2)
  - Injection site reaction [None]
  - Injection site erythema [None]
